FAERS Safety Report 17974834 (Version 2)
Quarter: 2021Q2

REPORT INFORMATION
  Report Type: Spontaneous
  Country: US (occurrence: US)
  Receive Date: 20200702
  Receipt Date: 20210629
  Transmission Date: 20210717
  Serious: No
  Sender: FDA-Public Use
  Company Number: US-TEVA-2020-US-1794087

PATIENT
  Sex: Male

DRUGS (1)
  1. DEXTROAMPHET SACCHARAT, AMPHET ASPARTATE, DEXTROAMPHET SULFATE AND AMPHET SULFAT [Suspect]
     Active Substance: AMPHETAMINE ASPARTATE\AMPHETAMINE SULFATE\DEXTROAMPHETAMINE SACCHARATE\DEXTROAMPHETAMINE SULFATE
     Indication: ATTENTION DEFICIT HYPERACTIVITY DISORDER
     Route: 065

REACTIONS (2)
  - Urticaria [Unknown]
  - Product quality issue [Unknown]

NARRATIVE: CASE EVENT DATE: 2020
